FAERS Safety Report 4867858-3 (Version None)
Quarter: 2005Q4

REPORT INFORMATION
  Report Type: 
  Country: None (occurrence: None)
  Receive Date: 20051227
  Receipt Date: 20051213
  Transmission Date: 20060501
  Serious: Yes (Hospitalization)
  Sender: FDA-Public Use
  Company Number: CH-JNJFOC-20051204285

PATIENT
  Age: 79 Year
  Sex: Male

DRUGS (2)
  1. RISPERDAL [Suspect]
     Dosage: 0.5 MG, 2 IN 1 DAY, ORAL
     Route: 048
     Dates: start: 20050705, end: 20050708
  2. SINTROM [Concomitant]

REACTIONS (9)
  - APATHY [None]
  - ASTHENIA [None]
  - BLOOD PRESSURE SYSTOLIC INCREASED [None]
  - COGNITIVE DETERIORATION [None]
  - CONFUSIONAL STATE [None]
  - DIFFICULTY IN WALKING [None]
  - DISORIENTATION [None]
  - HALLUCINATION [None]
  - VERTIGO [None]
